FAERS Safety Report 5518053-6 (Version None)
Quarter: 2007Q4

REPORT INFORMATION
  Report Type: 
  Country: None (occurrence: None)
  Receive Date: 20071115
  Receipt Date: 20071105
  Transmission Date: 20080405
  Serious: Yes (Other)
  Sender: FDA-Public Use
  Company Number: JP-JNJFOC-20071007223

PATIENT
  Age: 6 Decade
  Sex: Female

DRUGS (10)
  1. DUROTEP [Suspect]
     Indication: BACK PAIN
     Route: 062
  2. TOSUFLOXACIN TOSILATE [Interacting]
     Indication: INFECTION PROPHYLAXIS
     Route: 065
  3. NAPROXEN [Interacting]
     Indication: BACK PAIN
     Route: 048
  4. DICLOFENAC SODIUM [Interacting]
     Indication: BACK PAIN
     Route: 054
  5. VINCRISTINE SULFATE [Concomitant]
     Indication: CHEMOTHERAPY
     Route: 041
  6. DOXORUBICIN HCL [Concomitant]
     Indication: CHEMOTHERAPY
     Route: 041
  7. DEXAMETHASONE ACETATE [Concomitant]
     Indication: CHEMOTHERAPY
     Route: 041
  8. FLUCONAZOLE [Concomitant]
     Indication: INFECTION PROPHYLAXIS
     Route: 065
  9. SULFAMETHOXAZOLE AND TRIMETHOPRIM [Concomitant]
     Indication: INFECTION PROPHYLAXIS
     Route: 065
  10. TIZANIDINE HCL [Concomitant]
     Indication: BACK PAIN
     Route: 048

REACTIONS (2)
  - CONVULSION [None]
  - DRUG INTERACTION [None]
